FAERS Safety Report 20011984 (Version 1)
Quarter: 2021Q4

REPORT INFORMATION
  Report Type: Spontaneous
  Country: BR (occurrence: BR)
  Receive Date: 20211028
  Receipt Date: 20211028
  Transmission Date: 20220303
  Serious: Yes (Other)
  Sender: FDA-Public Use
  Company Number: BR-UCBSA-2021050105

PATIENT
  Sex: Female

DRUGS (1)
  1. KEPPRA [Suspect]
     Active Substance: LEVETIRACETAM
     Indication: Seizure
     Dosage: 4ML PER DAY
     Route: 048

REACTIONS (2)
  - Cerebral palsy [Unknown]
  - Off label use [Unknown]

NARRATIVE: CASE EVENT DATE: 20211020
